FAERS Safety Report 6593533-3 (Version None)
Quarter: 2010Q1

REPORT INFORMATION
  Report Type: 
  Country: None (occurrence: None)
  Receive Date: 20100212
  Receipt Date: 20100201
  Transmission Date: 20100710
  Serious: Yes (Other)
  Sender: FDA-Public Use
  Company Number: 2010SP002959

PATIENT
  Age: 25 Year
  Sex: Female

DRUGS (3)
  1. IMPLANON [Suspect]
     Indication: DRUG USE FOR UNKNOWN INDICATION
     Dosage: 1 DF,SC
     Route: 058
     Dates: start: 20060101, end: 20090601
  2. IMPLANON [Suspect]
     Indication: DRUG USE FOR UNKNOWN INDICATION
     Dosage: 1 DF,SC
     Route: 058
     Dates: start: 20090625, end: 20100122
  3. METHYLPREDNISOLONE [Suspect]
     Indication: MULTIPLE SCLEROSIS

REACTIONS (4)
  - BLISTER [None]
  - COMPLICATION OF DEVICE REMOVAL [None]
  - IMPLANT SITE URTICARIA [None]
  - MULTIPLE SCLEROSIS [None]
